FAERS Safety Report 18687598 (Version 1)
Quarter: 2020Q4

REPORT INFORMATION
  Report Type: Spontaneous
  Country: HR (occurrence: HR)
  Receive Date: 20201231
  Receipt Date: 20201231
  Transmission Date: 20210114
  Serious: Yes (Other)
  Sender: FDA-Public Use
  Company Number: NVSC2020HR341792

PATIENT
  Age: 28 Year
  Sex: Male

DRUGS (1)
  1. GILENYA [Suspect]
     Active Substance: FINGOLIMOD HYDROCHLORIDE
     Indication: MULTIPLE SCLEROSIS
     Dosage: 0.5 MG, QD (0.5 MG, 1XDNEVNO)
     Route: 048
     Dates: start: 20140201, end: 20201001

REACTIONS (3)
  - Thrombocytopenia [Recovering/Resolving]
  - Weight decreased [Recovering/Resolving]
  - Extrasystoles [Unknown]

NARRATIVE: CASE EVENT DATE: 20190301
